FAERS Safety Report 7778405-0 (Version None)
Quarter: 2011Q3

REPORT INFORMATION
  Report Type: 
  Country: None (occurrence: None)
  Receive Date: 20110926
  Receipt Date: 20110308
  Transmission Date: 20111222
  Serious: Yes (Death, Hospitalization)
  Sender: FDA-Public Use
  Company Number: US-GLAXOSMITHKLINE-A0918130A

PATIENT
  Age: 63 Year
  Sex: Male

DRUGS (1)
  1. AVANDIA [Suspect]
     Indication: DIABETES MELLITUS
     Dosage: 8MG PER DAY
     Route: 048
     Dates: start: 20020101, end: 20050101

REACTIONS (7)
  - DEATH [None]
  - LUNG DISORDER [None]
  - THROMBOSIS [None]
  - MYOCARDIAL INFARCTION [None]
  - ANGINA PECTORIS [None]
  - ILL-DEFINED DISORDER [None]
  - CARDIAC FAILURE [None]
